FAERS Safety Report 14749796 (Version 2)
Quarter: 2018Q2

REPORT INFORMATION
  Report Type: Report from Study
  Country: None (occurrence: DE)
  Receive Date: 20180412
  Receipt Date: 20180517
  Transmission Date: 20180711
  Serious: Yes (Hospitalization)
  Sender: FDA-Public Use
  Company Number: DE-ABBVIE-18K-062-2287451-00

PATIENT
  Age: 82 Year
  Sex: Male

DRUGS (31)
  1. ARCOXIA [Concomitant]
     Active Substance: ETORICOXIB
     Indication: RHEUMATOID ARTHRITIS
  2. PANTOZOL [Concomitant]
     Active Substance: PANTOPRAZOLE SODIUM
     Indication: PROPHYLAXIS
  3. OSTEO D [Concomitant]
     Indication: VITAMIN SUPPLEMENTATION
  4. FOLSAN [Concomitant]
     Active Substance: FOLIC ACID
     Indication: VITAMIN SUPPLEMENTATION
     Dates: start: 2018
  5. DUODOPA [Suspect]
     Active Substance: CARBIDOPA\LEVODOPA
     Dosage: MD 3.5 ML; CRD 4.0 ML/H; CRN 3.0 ML/H; ED 2.0 ML
     Route: 050
     Dates: start: 201803, end: 2018
  6. BERLTHYROX [Concomitant]
     Indication: HYPOTHYROIDISM
  7. ARCOXIA [Concomitant]
     Active Substance: ETORICOXIB
     Indication: PAIN
  8. VALDOXAN [Concomitant]
     Active Substance: AGOMELATINE
     Indication: DEPRESSION
     Dates: start: 2018
  9. PREDNISOLON [Concomitant]
     Active Substance: PREDNISOLONE
     Indication: RHEUMATOID ARTHRITIS
     Dates: start: 2018, end: 20180427
  10. PREDNISOLON [Concomitant]
     Active Substance: PREDNISOLONE
     Dosage: WEEKLY DOSE REDUCTION IN 20 MG STEPS TO 20 MG
     Dates: start: 2018, end: 2018
  11. PREDNISOLON [Concomitant]
     Active Substance: PREDNISOLONE
     Dosage: WEEKLY DOSE REDUCTION IN 5 MG STEPS TO 5 MG
     Dates: start: 2018
  12. GABAPENTIN. [Concomitant]
     Active Substance: GABAPENTIN
     Indication: PRODUCT USED FOR UNKNOWN INDICATION
     Dates: end: 2018
  13. PREDNISOLON [Concomitant]
     Active Substance: PREDNISOLONE
     Dosage: WEEKLY DOSE REDUCTION IN 5 MG STEPS TO 5 MG
     Dates: start: 2018, end: 2018
  14. SEROQUEL [Concomitant]
     Active Substance: QUETIAPINE FUMARATE
     Indication: PRODUCT USED FOR UNKNOWN INDICATION
  15. DOMPERIDON [Concomitant]
     Active Substance: DOMPERIDONE
     Indication: MOBILITY DECREASED
     Dates: start: 2018
  16. MOVICOL [Concomitant]
     Active Substance: POLYETHYLENE GLYCOL 3350\POTASSIUM CHLORIDE\SODIUM BICARBONATE\SODIUM CHLORIDE
     Indication: FAECALOMA
     Dosage: SACHET
  17. MADOPAR [Concomitant]
     Active Substance: BENSERAZIDE HYDROCHLORIDE\LEVODOPA
     Indication: PARKINSON^S DISEASE
     Dates: start: 2018
  18. VALSARTAN COMP [Concomitant]
     Active Substance: HYDROCHLOROTHIAZIDE\VALSARTAN
     Indication: HYPERTENSION
     Dosage: 80MG / 12.5 MG
     Dates: start: 2018
  19. SEROQUEL [Concomitant]
     Active Substance: QUETIAPINE FUMARATE
     Indication: HALLUCINATION, VISUAL
     Dates: start: 2018
  20. DUODOPA [Suspect]
     Active Substance: CARBIDOPA\LEVODOPA
     Indication: PARKINSON^S DISEASE
     Dosage: MD 5 ML; CRD 4.5 ML/H; CRN 4.0 ML/H; ED 1.5 ML
     Route: 050
     Dates: start: 20170724, end: 201803
  21. DUODOPA [Suspect]
     Active Substance: CARBIDOPA\LEVODOPA
     Dosage: MD: 3.8 ML, CRD: 3.6 ML/H, CRN: 2.6 ML/H, ED: 1.0 ML
     Route: 050
     Dates: start: 2018, end: 20180419
  22. MAGNESIUM [Concomitant]
     Active Substance: MAGNESIUM
     Indication: PRODUCT USED FOR UNKNOWN INDICATION
  23. MADOPAR DEPOT [Concomitant]
     Active Substance: BENSERAZIDE HYDROCHLORIDE\LEVODOPA
     Indication: PARKINSON^S DISEASE
     Dates: start: 2018
  24. CAPTO COMP [Concomitant]
     Indication: PRODUCT USED FOR UNKNOWN INDICATION
     Dosage: 50/25
  25. CALCIUM D3 [Concomitant]
     Active Substance: CALCIUM\CHOLECALCIFEROL
     Indication: PRODUCT USED FOR UNKNOWN INDICATION
  26. DEKRISTOL [Concomitant]
     Active Substance: CHOLECALCIFEROL
     Indication: PRODUCT USED FOR UNKNOWN INDICATION
  27. ARCOXIA [Concomitant]
     Active Substance: ETORICOXIB
     Indication: OSTEOARTHRITIS
  28. VALDOXAN [Concomitant]
     Active Substance: AGOMELATINE
     Indication: SLEEP DISORDER
  29. OSTEO D [Concomitant]
     Indication: MINERAL SUPPLEMENTATION
     Dates: start: 2018
  30. FOLSAN [Concomitant]
     Active Substance: FOLIC ACID
     Indication: PRODUCT USED FOR UNKNOWN INDICATION
  31. MADOPAR LT [Concomitant]
     Active Substance: BENSERAZIDE HYDROCHLORIDE\LEVODOPA
     Indication: PARKINSON^S DISEASE
     Dates: start: 2018

REACTIONS (3)
  - Epilepsy [Not Recovered/Not Resolved]
  - Akinesia [Not Recovered/Not Resolved]
  - Device dislocation [Unknown]

NARRATIVE: CASE EVENT DATE: 20180223
